FAERS Safety Report 18647694 (Version 1)
Quarter: 2020Q4

REPORT INFORMATION
  Report Type: Spontaneous
  Country: US (occurrence: US)
  Receive Date: 20201222
  Receipt Date: 20201222
  Transmission Date: 20210114
  Serious: No
  Sender: FDA-Public Use
  Company Number: US-RECKITT BENCKISER HEALTHCARE INT LIMITED-RB-85365-2020

PATIENT
  Age: 60 Year
  Sex: Male

DRUGS (1)
  1. DELSYM [Suspect]
     Active Substance: DEXTROMETHORPHAN
     Indication: COUGH
     Dosage: 10 MILLILITER AT EVERY 4 HOURS (140 ML IN TOTAL)
     Route: 065
     Dates: start: 20200228, end: 20200304

REACTIONS (2)
  - Inappropriate schedule of product administration [Unknown]
  - Drug ineffective [Recovered/Resolved]
